FAERS Safety Report 8439164-1 (Version None)
Quarter: 2012Q2

REPORT INFORMATION
  Report Type: 
  Country: None (occurrence: None)
  Receive Date: 20120615
  Receipt Date: 20120607
  Transmission Date: 20120825
  Serious: Yes (Other)
  Sender: FDA-Public Use
  Company Number: PHEH2012US011549

PATIENT

DRUGS (1)
  1. VIVELLE-DOT [Suspect]
     Dosage: UNK UKN, UNK

REACTIONS (4)
  - SLEEP DISORDER [None]
  - MOOD ALTERED [None]
  - HOT FLUSH [None]
  - DRUG INEFFECTIVE [None]
